FAERS Safety Report 9115394 (Version 1)
Quarter: 2013Q1

REPORT INFORMATION
  Report Type: Report from Study
  Country: DE (occurrence: DE)
  Receive Date: 20130225
  Receipt Date: 20130225
  Transmission Date: 20140127
  Serious: Yes (Death, Hospitalization)
  Sender: FDA-Public Use
  Company Number: DE-CELGENEUS-062-50794-13012675

PATIENT
  Age: 73 Year
  Sex: Male
  Weight: 82 kg

DRUGS (15)
  1. VIDAZA [Suspect]
     Indication: MYELODYSPLASTIC SYNDROME
     Dosage: 161MG
     Route: 058
     Dates: start: 20120514, end: 20120523
  2. NOVALGIN [Concomitant]
     Indication: PAIN
     Route: 065
  3. ARSENICUM Q2 [Concomitant]
     Indication: PRODUCT USED FOR UNKNOWN INDICATION
     Route: 065
  4. FENTANYL [Concomitant]
     Indication: PAIN
     Route: 065
  5. ALLOPURINOL [Concomitant]
     Indication: PRODUCT USED FOR UNKNOWN INDICATION
     Dosage: 300 OTHER
     Route: 065
  6. LACTULOSE [Concomitant]
     Indication: CONSTIPATION
     Route: 065
  7. IBUPROFEN [Concomitant]
     Indication: PAIN
     Route: 065
  8. LEVETIRACETAM [Concomitant]
     Indication: EPILEPSY
     Route: 065
  9. LEVOTHYROXINE [Concomitant]
     Indication: THYROID DISORDER
     Route: 065
  10. SIMVASTATIN [Concomitant]
     Indication: BLOOD CHOLESTEROL ABNORMAL
     Dosage: 20 MILLIGRAM
     Route: 065
  11. MORPHINE [Concomitant]
     Indication: PAIN
     Route: 065
  12. TIOTROPIUM BROMIDE [Concomitant]
     Indication: CHRONIC OBSTRUCTIVE PULMONARY DISEASE
     Route: 065
  13. LORAZEPAM [Concomitant]
     Indication: ANXIOLYTIC THERAPY
     Route: 048
  14. LORAZEPAM [Concomitant]
     Indication: EPILEPSY
     Route: 065
  15. AZILSARTAN MEDOXOMIL [Concomitant]
     Indication: HYPERTENSION
     Route: 065

REACTIONS (2)
  - General physical health deterioration [Fatal]
  - Spinal pain [Not Recovered/Not Resolved]
